FAERS Safety Report 4712393-6 (Version None)
Quarter: 2005Q3

REPORT INFORMATION
  Report Type: 
  Country: None (occurrence: None)
  Receive Date: 20050711
  Receipt Date: 20050630
  Transmission Date: 20060218
  Serious: Yes (Death, Other)
  Sender: FDA-Public Use
  Company Number: 2005-06-0316

PATIENT
  Age: 60 Year
  Sex: Female
  Weight: 66 kg

DRUGS (2)
  1. TEMODAL [Suspect]
     Indication: METASTASES TO CENTRAL NERVOUS SYSTEM
     Dosage: 90 MG QD
     Dates: start: 20050310, end: 20050329
  2. RADIATION THERAPY [Concomitant]

REACTIONS (5)
  - FEMALE GENITAL-DIGESTIVE TRACT FISTULA [None]
  - HAEMOGLOBIN DECREASED [None]
  - HAEMORRHAGE [None]
  - NEOPLASM PROGRESSION [None]
  - THROMBOCYTOPENIA [None]
